FAERS Safety Report 4707291-8 (Version None)
Quarter: 2005Q3

REPORT INFORMATION
  Report Type: 
  Country: None (occurrence: None)
  Receive Date: 20050701
  Receipt Date: 20050701
  Transmission Date: 20060218
  Serious: Yes (Hospitalization)
  Sender: FDA-Public Use
  Company Number: None

PATIENT
  Age: 44 Year
  Sex: Male
  Weight: 62.6 kg

DRUGS (2)
  1. DILANTIN [Suspect]
     Indication: CONVULSION
     Dosage: 300 MG BID ORAL
     Route: 048
     Dates: start: 20030513, end: 20050629
  2. COMBIVENT [Concomitant]

REACTIONS (4)
  - ANTICONVULSANT TOXICITY [None]
  - ASTHENIA [None]
  - BALANCE DISORDER [None]
  - DYSARTHRIA [None]
